FAERS Safety Report 14418008 (Version 4)
Quarter: 2018Q1

REPORT INFORMATION
  Report Type: Other
  Country: US (occurrence: US)
  Receive Date: 20180122
  Receipt Date: 20180323
  Transmission Date: 20180509
  Serious: Yes (Hospitalization, Other)
  Sender: FDA-Public Use
  Company Number: US-INTERCEPT-PMOCA2017001069

PATIENT

DRUGS (3)
  1. OCALIVA [Suspect]
     Active Substance: OBETICHOLIC ACID
     Indication: PRIMARY BILIARY CHOLANGITIS
     Dosage: 10 MG, UNK
     Route: 048
     Dates: start: 20160601
  2. URSODIOL. [Concomitant]
     Active Substance: URSODIOL
     Dosage: UNK
  3. CYCLOSPORINE. [Concomitant]
     Active Substance: CYCLOSPORINE
     Dosage: UNK

REACTIONS (10)
  - Pneumonia [Not Recovered/Not Resolved]
  - Emotional distress [Unknown]
  - Disease progression [Not Recovered/Not Resolved]
  - Ligament rupture [Unknown]
  - Malaise [Unknown]
  - Gait disturbance [Not Recovered/Not Resolved]
  - Haematoma [Not Recovered/Not Resolved]
  - Dehydration [Unknown]
  - Pyrexia [Unknown]
  - Viral infection [Not Recovered/Not Resolved]
